FAERS Safety Report 19240219 (Version 1)
Quarter: 2021Q2

REPORT INFORMATION
  Report Type: Spontaneous
  Country: US (occurrence: US)
  Receive Date: 20210511
  Receipt Date: 20210511
  Transmission Date: 20210717
  Serious: No
  Sender: FDA-Public Use
  Company Number: US-JNJFOC-20210439960

PATIENT
  Sex: Female
  Weight: 50 kg

DRUGS (1)
  1. ZYRTEC [Suspect]
     Active Substance: CETIRIZINE HYDROCHLORIDE
     Indication: HYPERSENSITIVITY
     Dosage: LAST DATE OF DRUG ADMINISTRATION: 20/APR/2021
     Route: 048
     Dates: start: 20000401

REACTIONS (1)
  - Drug ineffective [Unknown]
